FAERS Safety Report 16139851 (Version 1)
Quarter: 2019Q2

REPORT INFORMATION
  Report Type: Spontaneous
  Country: SE (occurrence: AU)
  Receive Date: 20190401
  Receipt Date: 20190401
  Transmission Date: 20190711
  Serious: Yes (Life-Threatening)
  Sender: FDA-Public Use
  Company Number: AU-ASTRAZENECA-2005AP05448

PATIENT
  Age: 26518 Day
  Sex: Female

DRUGS (5)
  1. METFORMIN HYDROCHLORIDE. [Suspect]
     Active Substance: METFORMIN HYDROCHLORIDE
     Indication: DIABETES MELLITUS
     Route: 048
     Dates: end: 20010127
  2. CYANOCOBALAMIN. [Suspect]
     Active Substance: CYANOCOBALAMIN
     Route: 065
     Dates: end: 20010127
  3. RANITIDINE. [Suspect]
     Active Substance: RANITIDINE
     Route: 048
     Dates: end: 20010127
  4. FELODIPINE. [Suspect]
     Active Substance: FELODIPINE
     Route: 048
     Dates: end: 20010127
  5. DOXEPIN HYDROCHLORIDE. [Suspect]
     Active Substance: DOXEPIN HYDROCHLORIDE
     Route: 065
     Dates: end: 20010127

REACTIONS (3)
  - Vomiting [Recovered/Resolved]
  - Acute kidney injury [Recovered/Resolved]
  - Hypokalaemia [Recovered/Resolved]

NARRATIVE: CASE EVENT DATE: 20010127
